FAERS Safety Report 21035110 (Version 1)
Quarter: 2022Q3

REPORT INFORMATION
  Report Type: Spontaneous
  Country: AE (occurrence: None)
  Receive Date: 20220701
  Receipt Date: 20220701
  Transmission Date: 20221026
  Serious: No
  Sender: FDA-Public Use
  Company Number: None

PATIENT
  Age: 35 Year
  Sex: Male

DRUGS (1)
  1. ENTYVIO [Suspect]
     Active Substance: VEDOLIZUMAB
     Indication: Colitis ulcerative
     Route: 042

REACTIONS (18)
  - Therapy non-responder [None]
  - Proctalgia [None]
  - Rectal tenesmus [None]
  - Hypersensitivity [None]
  - Rash pruritic [None]
  - Feeling hot [None]
  - Oropharyngeal pain [None]
  - Dizziness [None]
  - Chills [None]
  - Arthralgia [None]
  - Hypoaesthesia oral [None]
  - Fatigue [None]
  - Myalgia [None]
  - Asthenia [None]
  - Colitis ulcerative [None]
  - Enlarged uvula [None]
  - Obstructive airways disorder [None]
  - Choking [None]

NARRATIVE: CASE EVENT DATE: 20220701
